FAERS Safety Report 5224096-2 (Version None)
Quarter: 2007Q1

REPORT INFORMATION
  Report Type: 
  Country: None (occurrence: None)
  Receive Date: 20070130
  Receipt Date: 20070123
  Transmission Date: 20070707
  Serious: Yes (Life-Threatening, Other)
  Sender: FDA-Public Use
  Company Number: US-JNJFOC-20061001826

PATIENT
  Sex: Female
  Weight: 72.58 kg

DRUGS (4)
  1. REMICADE [Suspect]
     Route: 042
  2. REMICADE [Suspect]
     Dosage: DOSE = 3 VIALS
     Route: 042
  3. REMICADE [Suspect]
     Dosage: DOSE = 3 VIALS
     Route: 042
  4. REMICADE [Suspect]
     Indication: RHEUMATOID ARTHRITIS
     Dosage: DOSE = 3 VIALS
     Route: 042

REACTIONS (2)
  - LUNG NEOPLASM MALIGNANT [None]
  - PANCREATIC CYST [None]
